FAERS Safety Report 17488367 (Version 2)
Quarter: 2020Q2

REPORT INFORMATION
  Report Type: Spontaneous
  Country: US (occurrence: US)
  Receive Date: 20200303
  Receipt Date: 20200401
  Transmission Date: 20200713
  Serious: No
  Sender: FDA-Public Use
  Company Number: US-BEH-2020113472

PATIENT
  Sex: Female
  Weight: 97.96 kg

DRUGS (1)
  1. PRIVIGEN [Suspect]
     Active Substance: HUMAN IMMUNOGLOBULIN G
     Indication: MYASTHENIA GRAVIS
     Dosage: 75 GRAM, QMT
     Route: 042
     Dates: start: 201704

REACTIONS (3)
  - Anxiety [Unknown]
  - Product distribution issue [Unknown]
  - Dyspnoea [Unknown]
